FAERS Safety Report 10706734 (Version 2)
Quarter: 2015Q1

REPORT INFORMATION
  Report Type: Report from Study
  Country: US (occurrence: US)
  Receive Date: 20150113
  Receipt Date: 20150302
  Transmission Date: 20150721
  Serious: Yes (Other)
  Sender: FDA-Public Use
  Company Number: 2015SP000020

PATIENT
  Age: 18 Year
  Sex: Male
  Weight: 72 kg

DRUGS (8)
  1. PROPRANOLOL [Concomitant]
     Active Substance: PROPRANOLOL\PROPRANOLOL HYDROCHLORIDE
     Indication: RESTLESSNESS
     Route: 048
     Dates: start: 20140514, end: 20141229
  2. ATIVAN [Concomitant]
     Active Substance: LORAZEPAM
     Indication: ANXIETY
     Route: 048
     Dates: start: 20140514
  3. PROPRANOLOL [Concomitant]
     Active Substance: PROPRANOLOL\PROPRANOLOL HYDROCHLORIDE
     Indication: ANXIETY
     Route: 048
     Dates: start: 20140514, end: 20141229
  4. SM-13496 [Suspect]
     Active Substance: LURASIDONE HYDROCHLORIDE
     Indication: AUTISM
     Route: 048
     Dates: start: 20140911, end: 20141104
  5. PROPRANOLOL [Concomitant]
     Active Substance: PROPRANOLOL\PROPRANOLOL HYDROCHLORIDE
     Indication: ANXIETY
     Route: 048
     Dates: start: 20141230
  6. SM-13496 [Suspect]
     Active Substance: LURASIDONE HYDROCHLORIDE
     Indication: AUTISM
     Route: 048
     Dates: start: 20141105, end: 20150102
  7. SM-13496 [Suspect]
     Active Substance: LURASIDONE HYDROCHLORIDE
     Indication: AUTISM
     Route: 048
     Dates: start: 20140430, end: 20140910
  8. PROPRANOLOL [Concomitant]
     Active Substance: PROPRANOLOL\PROPRANOLOL HYDROCHLORIDE
     Indication: RESTLESSNESS
     Route: 048
     Dates: start: 20141230

REACTIONS (1)
  - Aggression [Recovered/Resolved]

NARRATIVE: CASE EVENT DATE: 20150102
